FAERS Safety Report 4884325-1 (Version None)
Quarter: 2005Q4

REPORT INFORMATION
  Report Type: 
  Country: None (occurrence: None)
  Receive Date: 20051201
  Receipt Date: 20050829
  Transmission Date: 20060501
  Serious: No
  Sender: FDA-Public Use
  Company Number: 2005PV001679

PATIENT
  Age: 52 Year
  Sex: Female
  Weight: 130.6359 kg

DRUGS (9)
  1. BYETTA [Suspect]
     Indication: DIABETES MELLITUS NON-INSULIN-DEPENDENT
     Dosage: SEE IMAGE
     Route: 058
     Dates: start: 20050701, end: 20050820
  2. BYETTA [Suspect]
     Indication: DIABETES MELLITUS NON-INSULIN-DEPENDENT
     Dosage: SEE IMAGE
     Route: 058
     Dates: start: 20050821
  3. IBUPROFEN [Concomitant]
  4. VITAMINE E [Concomitant]
  5. VITAMIN B50 [Concomitant]
  6. ASCORBIC ACID [Concomitant]
  7. MULTIVITAMIN [Concomitant]
  8. AMARYL [Concomitant]
  9. METFORMIN HCL [Concomitant]

REACTIONS (1)
  - INJECTION SITE BRUISING [None]
